FAERS Safety Report 12897202 (Version 1)
Quarter: 2016Q4

REPORT INFORMATION
  Report Type: Spontaneous
  Country: US (occurrence: US)
  Receive Date: 20161031
  Receipt Date: 20161031
  Transmission Date: 20170207
  Serious: No
  Sender: FDA-Public Use
  Company Number: US-ENDO PHARMACEUTICALS INC.-2016-003242

PATIENT
  Sex: Male
  Weight: 92.62 kg

DRUGS (1)
  1. MORPHINE SULFATE ER [Suspect]
     Active Substance: MORPHINE SULFATE
     Indication: SLEEP DISORDER
     Route: 065

REACTIONS (2)
  - Off label use [Unknown]
  - Pain [Unknown]
